FAERS Safety Report 5357111-6 (Version None)
Quarter: 2007Q2

REPORT INFORMATION
  Report Type: 
  Country: None (occurrence: None)
  Receive Date: 20070530
  Receipt Date: 20061211
  Transmission Date: 20071010
  Serious: Yes (Hospitalization)
  Sender: FDA-Public Use
  Company Number: US200608003646

PATIENT
  Age: 54 Year
  Sex: Female
  Weight: 99.8 kg

DRUGS (3)
  1. ZYPREXA [Suspect]
     Indication: SCHIZOPHRENIA
     Dosage: 7.5 MG
     Dates: start: 20010101, end: 20040101
  2. TENORMIN [Concomitant]
  3. ESTROGENS, COMBINATIONS WITH OTHER DRUGS [Concomitant]

REACTIONS (6)
  - BLOOD CHOLESTEROL ABNORMAL [None]
  - BLOOD TRIGLYCERIDES INCREASED [None]
  - CARDIAC FAILURE CONGESTIVE [None]
  - DIABETES MELLITUS [None]
  - METABOLIC DISORDER [None]
  - OBESITY [None]
